FAERS Safety Report 4601461-5 (Version None)
Quarter: 2005Q1

REPORT INFORMATION
  Report Type: 
  Country: None (occurrence: None)
  Receive Date: 20050204
  Receipt Date: 20040614
  Transmission Date: 20050727
  Serious: Yes (Death)
  Sender: FDA-Public Use
  Company Number: US_0406103660

PATIENT
  Age: 81 Year
  Sex: Female

DRUGS (3)
  1. FORTEO [Suspect]
     Dates: start: 20030401
  2. EVISTA [Suspect]
     Dates: start: 19990319, end: 19990331
  3. CALCIUM WITH VITAMIN D [Concomitant]

REACTIONS (2)
  - DEATH [None]
  - NAUSEA [None]
